FAERS Safety Report 4880672-8 (Version None)
Quarter: 2006Q1

REPORT INFORMATION
  Report Type: 
  Country: None (occurrence: None)
  Receive Date: 20060113
  Receipt Date: 20051017
  Transmission Date: 20060701
  Serious: Yes (Hospitalization, Other)
  Sender: FDA-Public Use
  Company Number: US-MERCK-0510USA07814

PATIENT
  Age: 69 Year
  Sex: Female
  Weight: 72 kg

DRUGS (11)
  1. VIOXX [Suspect]
     Indication: ARTHRITIS
     Route: 048
     Dates: start: 19991201, end: 20040930
  2. LISINOPRIL [Concomitant]
     Route: 065
  3. POTASSIUM (UNSPECIFIED) [Concomitant]
     Route: 065
  4. COLAZAL [Concomitant]
     Indication: COLITIS ULCERATIVE
     Route: 065
  5. PROPOXYPHENE HYDROCHLORIDE [Concomitant]
     Route: 065
  6. RANITIDINE [Concomitant]
     Route: 065
  7. ZOCOR [Concomitant]
     Indication: BLOOD CHOLESTEROL INCREASED
     Route: 048
     Dates: start: 19990901, end: 20040801
  8. ATENOLOL [Concomitant]
     Indication: HYPERTENSION
     Route: 065
     Dates: start: 19991009, end: 20001109
  9. COZAAR [Concomitant]
     Indication: HYPERTENSION
     Route: 048
     Dates: start: 20011108, end: 20030418
  10. PREDNISONE [Concomitant]
     Indication: PAIN
     Route: 065
     Dates: start: 20000101, end: 20001201
  11. PREMARIN [Concomitant]
     Route: 065
     Dates: start: 20000301, end: 20030101

REACTIONS (6)
  - ARTERIOSCLEROSIS [None]
  - CARDIAC FAILURE [None]
  - LOSS OF CONSCIOUSNESS [None]
  - MYOCARDIAL INFARCTION [None]
  - PULMONARY EMBOLISM [None]
  - THROMBOSIS [None]
